FAERS Safety Report 6728307-3 (Version None)
Quarter: 2010Q2

REPORT INFORMATION
  Report Type: 
  Country: None (occurrence: None)
  Receive Date: 20100517
  Receipt Date: 20100511
  Transmission Date: 20101027
  Serious: Yes (Other)
  Sender: FDA-Public Use
  Company Number: US-RB-008882-10

PATIENT
  Sex: Male

DRUGS (5)
  1. SUBOXONE [Suspect]
     Indication: DRUG DEPENDENCE
     Route: 060
     Dates: start: 20091001
  2. KLONOPIN [Concomitant]
     Indication: ANXIETY
     Dosage: DOSING DETAILS UNKNOWN
     Route: 065
  3. PROZAC [Concomitant]
     Indication: DEPRESSION
     Dosage: DOSING DETAILS UNKNOWN
     Route: 065
  4. PROZAC [Concomitant]
     Indication: ANXIETY
     Dosage: DOSING DETAILS UNKNOWN
     Route: 065
  5. RESTORIL [Concomitant]
     Indication: INSOMNIA
     Dosage: DOSING DETAILS UNKNOWN
     Route: 065

REACTIONS (4)
  - DILATATION ATRIAL [None]
  - OEDEMA [None]
  - SOMNOLENCE [None]
  - WEIGHT INCREASED [None]
